FAERS Safety Report 6911601-0 (Version None)
Quarter: 2010Q3

REPORT INFORMATION
  Report Type: 
  Country: None (occurrence: None)
  Receive Date: 20100806
  Receipt Date: 20100728
  Transmission Date: 20110219
  Serious: Yes (Other)
  Sender: FDA-Public Use
  Company Number: US-PFIZER INC-2010095603

PATIENT
  Sex: Female
  Weight: 63.43 kg

DRUGS (2)
  1. LYRICA [Suspect]
     Indication: CONVULSION
     Dosage: 20 MG, 3X/DAY
     Route: 048
     Dates: start: 20080101
  2. LIPITOR [Suspect]
     Indication: BLOOD CHOLESTEROL INCREASED
     Dosage: UNK, DAILY
     Route: 048
     Dates: start: 20100725, end: 20100727

REACTIONS (3)
  - BLOOD CHOLESTEROL INCREASED [None]
  - CONVULSION [None]
  - THYROID DISORDER [None]
